FAERS Safety Report 6143454-5 (Version None)
Quarter: 2009Q2

REPORT INFORMATION
  Report Type: 
  Country: None (occurrence: None)
  Receive Date: 20090403
  Receipt Date: 20090326
  Transmission Date: 20091009
  Serious: Yes (Other)
  Sender: FDA-Public Use
  Company Number: PHHY2009CA11558

PATIENT
  Sex: Male

DRUGS (2)
  1. FEMARA [Suspect]
     Indication: PRECOCIOUS PUBERTY
     Dosage: 2.5 MG, QD
     Dates: start: 20081111
  2. FEMARA [Suspect]
     Indication: GROWTH RETARDATION

REACTIONS (1)
  - BRONCHIOLITIS [None]
